FAERS Safety Report 21864641 (Version 1)
Quarter: 2023Q1

REPORT INFORMATION
  Report Type: Report from Study
  Country: JP (occurrence: JP)
  Receive Date: 20230116
  Receipt Date: 20230116
  Transmission Date: 20230417
  Serious: Yes (Death, Other)
  Sender: FDA-Public Use
  Company Number: JP-002147023-NVSJ2020JP005316

PATIENT
  Age: 63 Year
  Sex: Female

DRUGS (3)
  1. KYMRIAH [Suspect]
     Active Substance: TISAGENLECLEUCEL
     Indication: Diffuse large B-cell lymphoma
     Dosage: FULL DOSE ,TOTAL NUMBER OF LYMPHOCYTES: 6.74 X10^7
     Route: 040
     Dates: start: 20200518, end: 20200518
  2. FLUDARABINE [Concomitant]
     Active Substance: FLUDARABINE PHOSPHATE
     Indication: Product used for unknown indication
     Dosage: TOTAL DOSE 75
     Route: 065
     Dates: start: 20200514
  3. CYCLOPHOSPHAMIDE [Concomitant]
     Active Substance: CYCLOPHOSPHAMIDE
     Indication: Product used for unknown indication
     Dosage: 750 MG/M2
     Route: 065
     Dates: start: 20200514

REACTIONS (15)
  - Diffuse large B-cell lymphoma [Fatal]
  - Malignant neoplasm progression [Fatal]
  - Respiratory failure [Fatal]
  - Bacterial infection [Fatal]
  - Cytokine release syndrome [Recovered/Resolved]
  - Hypogammaglobulinaemia [Not Recovered/Not Resolved]
  - Platelet count decreased [Unknown]
  - White blood cell count decreased [Unknown]
  - Agranulocytosis [Recovered/Resolved]
  - Vasculitis [Unknown]
  - Rash [Recovering/Resolving]
  - Ecchymosis [Unknown]
  - Pyrexia [Recovered/Resolved]
  - Blood pressure decreased [Recovered/Resolved]
  - Varicella [Unknown]

NARRATIVE: CASE EVENT DATE: 20200518
